FAERS Safety Report 11265228 (Version 1)
Quarter: 2015Q3

REPORT INFORMATION
  Report Type: Spontaneous
  Country: NL (occurrence: NL)
  Receive Date: 20150713
  Receipt Date: 20150713
  Transmission Date: 20151125
  Serious: Yes (Other)
  Sender: FDA-Public Use
  Company Number: NL-BAYER-2015-373090

PATIENT
  Sex: Female

DRUGS (1)
  1. MIRENA [Suspect]
     Active Substance: LEVONORGESTREL
     Dosage: 20 MCG/24HR, CONT
     Route: 015
     Dates: start: 201408

REACTIONS (4)
  - Genital haemorrhage [None]
  - Atrial fibrillation [Recovering/Resolving]
  - Extrasystoles [None]
  - Palpitations [None]

NARRATIVE: CASE EVENT DATE: 2014
